FAERS Safety Report 6437029-8 (Version None)
Quarter: 2009Q4

REPORT INFORMATION
  Report Type: 
  Country: None (occurrence: None)
  Receive Date: 20091112
  Receipt Date: 20091104
  Transmission Date: 20100525
  Serious: Yes (Death, Hospitalization)
  Sender: FDA-Public Use
  Company Number: US-JNJFOC-20091102745

PATIENT
  Sex: Female
  Weight: 51.7 kg

DRUGS (16)
  1. DOXORUBICIN HYDROCHLORIDE [Suspect]
     Indication: OVARIAN CANCER RECURRENT
     Route: 042
     Dates: start: 20090914, end: 20091013
  2. TASISULAM SODIUM [Suspect]
     Indication: OVARIAN CANCER RECURRENT
     Route: 042
     Dates: start: 20090914, end: 20091013
  3. GLYCERYL TRINITRATE [Concomitant]
     Route: 065
  4. TOPROL-XL [Concomitant]
     Route: 065
  5. ZOCOR [Concomitant]
     Route: 065
  6. LEVOTHYROXINE SODIUM [Concomitant]
     Route: 065
  7. HYDROCHLOROTHIAZIDE [Concomitant]
     Route: 065
  8. MORPHINE [Concomitant]
     Route: 065
  9. OLMESARTAN MEDOXOMIL [Concomitant]
     Route: 065
  10. AVALIDE [Concomitant]
     Route: 065
  11. PRILOSEC [Concomitant]
     Route: 065
  12. CALCIUM CARBONATE [Concomitant]
     Route: 065
  13. DIPHENHYDRAMINE HYDROCHLORIDE [Concomitant]
     Route: 065
  14. LIDOCAINE HYDROCHLORIDE [Concomitant]
     Route: 065
  15. NYSTATIN [Concomitant]
     Indication: MUCOSAL INFLAMMATION
     Route: 065
  16. MULTIPLE VITAMINS [Concomitant]
     Route: 065

REACTIONS (10)
  - ATRIAL FIBRILLATION [None]
  - CARDIAC ARREST [None]
  - DEHYDRATION [None]
  - DYSPHAGIA [None]
  - MUCOSAL INFLAMMATION [None]
  - MYOCARDIAL ISCHAEMIA [None]
  - OVARIAN CANCER [None]
  - PNEUMONIA [None]
  - STOMATITIS [None]
  - THROMBOCYTOPENIA [None]
